FAERS Safety Report 7518581-8 (Version None)
Quarter: 2011Q2

REPORT INFORMATION
  Report Type: 
  Country: None (occurrence: None)
  Receive Date: 20110601
  Receipt Date: 20110601
  Transmission Date: 20111010
  Serious: Yes (Other)
  Sender: FDA-Public Use
  Company Number: None

PATIENT
  Age: 64 Year
  Sex: Female
  Weight: 86.1834 kg

DRUGS (1)
  1. METFORMIN HCL [Suspect]
     Indication: GLUCOSE TOLERANCE IMPAIRED
     Dosage: 500MG ONCE A DAY PO
     Route: 048
     Dates: start: 20110520, end: 20110526

REACTIONS (6)
  - DISCOMFORT [None]
  - IMPAIRED DRIVING ABILITY [None]
  - GASTROOESOPHAGEAL REFLUX DISEASE [None]
  - ABDOMINAL PAIN UPPER [None]
  - INSOMNIA [None]
  - PRODUCT SUBSTITUTION ISSUE [None]
